FAERS Safety Report 9749272 (Version 1)
Quarter: 2013Q4

REPORT INFORMATION
  Report Type: Spontaneous
  Country: US (occurrence: US)
  Receive Date: 20131212
  Receipt Date: 20131212
  Transmission Date: 20140711
  Serious: Yes (Other)
  Sender: FDA-Public Use
  Company Number: US-TEVA-393903USA

PATIENT
  Age: 35 Year
  Sex: Female
  Weight: 74.46 kg

DRUGS (2)
  1. PARAGARD 380A [Suspect]
     Indication: CONTRACEPTION
     Route: 015
     Dates: start: 20130129, end: 20130320
  2. DEPO PROVERA [Concomitant]
     Indication: CONTRACEPTION
     Dates: start: 201201

REACTIONS (1)
  - Vaginal haemorrhage [Unknown]
